FAERS Safety Report 8543036-1 (Version None)
Quarter: 2012Q3

REPORT INFORMATION
  Report Type: 
  Country: None (occurrence: None)
  Receive Date: 20120727
  Receipt Date: 20120718
  Transmission Date: 20120928
  Serious: Yes (Other)
  Sender: FDA-Public Use
  Company Number: BR-JNJFOC-20120710750

PATIENT
  Sex: Male
  Weight: 120 kg

DRUGS (4)
  1. METHOTREXATE [Suspect]
     Indication: PSORIATIC ARTHROPATHY
     Route: 042
     Dates: start: 20110101
  2. REMICADE [Suspect]
     Indication: PSORIATIC ARTHROPATHY
     Route: 042
  3. REMICADE [Suspect]
     Route: 042
     Dates: start: 20120430
  4. FOLIC ACID [Suspect]
     Indication: PSORIATIC ARTHROPATHY
     Route: 065

REACTIONS (13)
  - THIRST [None]
  - WEIGHT INCREASED [None]
  - PYREXIA [None]
  - DENGUE FEVER [None]
  - HEADACHE [None]
  - BLOOD PRESSURE INCREASED [None]
  - SYNCOPE [None]
  - INGROWING NAIL [None]
  - WEIGHT LOSS POOR [None]
  - ARTHRALGIA [None]
  - DIZZINESS [None]
  - ASTHENIA [None]
  - PHARYNGITIS [None]
